FAERS Safety Report 9587307 (Version 1)
Quarter: 2013Q4

REPORT INFORMATION
  Report Type: Spontaneous
  Country: US (occurrence: None)
  Receive Date: 20131003
  Receipt Date: 20131003
  Transmission Date: 20140711
  Serious: Yes (Hospitalization)
  Sender: FDA-Public Use
  Company Number: None

PATIENT
  Age: 62 Year
  Sex: 0

DRUGS (2)
  1. ZOLPIDEM TARTRATE [Suspect]
     Indication: SPINAL COLUMN STENOSIS
  2. ZOLPIDEM TARTRATE [Suspect]
     Indication: ARTHRITIS

REACTIONS (4)
  - Somnambulism [None]
  - Fall [None]
  - Pelvic fracture [None]
  - Contusion [None]
